FAERS Safety Report 12699690 (Version 1)
Quarter: 2016Q3

REPORT INFORMATION
  Report Type: Spontaneous
  Country: US (occurrence: US)
  Receive Date: 20160830
  Receipt Date: 20160830
  Transmission Date: 20161109
  Serious: No
  Sender: FDA-Public Use
  Company Number: US-AMNEAL PHARMACEUTICALS-2015AMN00005

PATIENT
  Sex: Male
  Weight: 95.24 kg

DRUGS (6)
  1. SPIRONOLACTONE. [Suspect]
     Active Substance: SPIRONOLACTONE
     Indication: BLOOD PRESSURE INCREASED
  2. SPIRONOLACTONE. [Suspect]
     Active Substance: SPIRONOLACTONE
     Indication: PERIPHERAL SWELLING
     Dosage: 1 TABLETS, 1X/DAY
     Route: 048
     Dates: start: 2009, end: 201505
  3. ATENOLOL 25 MG [Concomitant]
     Active Substance: ATENOLOL
     Indication: CARDIAC FIBRILLATION
     Dosage: 1 TABLETS, UNK
     Route: 048
  4. COUMADIN [Concomitant]
     Active Substance: WARFARIN SODIUM
     Indication: ANTICOAGULANT THERAPY
     Dosage: 5 MG, UNK
     Route: 048
  5. TAMSULOSIN 0.4 MG [Concomitant]
     Active Substance: TAMSULOSIN
     Indication: PROSTATOMEGALY
     Route: 048
  6. LEVOTHYROXINE 25 MCG [Concomitant]
     Route: 048

REACTIONS (3)
  - Breast pain [Unknown]
  - Gynaecomastia [Not Recovered/Not Resolved]
  - Breast mass [Unknown]

NARRATIVE: CASE EVENT DATE: 2009
